FAERS Safety Report 10059737 (Version 1)
Quarter: 2014Q2

REPORT INFORMATION
  Report Type: Spontaneous
  Country: BR (occurrence: BR)
  Receive Date: 20140404
  Receipt Date: 20140404
  Transmission Date: 20141212
  Serious: Yes (Hospitalization, Other)
  Sender: FDA-Public Use
  Company Number: BR-ABBVIE-14P-020-1218092-00

PATIENT
  Sex: Male

DRUGS (3)
  1. HUMIRA [Suspect]
     Indication: CROHN^S DISEASE
     Dosage: WEEK 0
  2. HUMIRA [Suspect]
     Dosage: WEEK 2
  3. HUMIRA [Suspect]
     Dates: end: 201312

REACTIONS (13)
  - Drug-induced liver injury [Recovering/Resolving]
  - Lymph node tuberculosis [Recovering/Resolving]
  - Pyrexia [Recovering/Resolving]
  - Malaise [Recovering/Resolving]
  - Fatigue [Recovering/Resolving]
  - Chills [Recovering/Resolving]
  - Decreased appetite [Recovering/Resolving]
  - Skin mass [Recovering/Resolving]
  - Abscess [Recovering/Resolving]
  - Splenic abscess [Recovering/Resolving]
  - Anaemia [Recovering/Resolving]
  - Pancytopenia [Recovering/Resolving]
  - Erythema [Recovering/Resolving]
